FAERS Safety Report 12651364 (Version 1)
Quarter: 2016Q3

REPORT INFORMATION
  Report Type: Spontaneous
  Country: US (occurrence: US)
  Receive Date: 20160815
  Receipt Date: 20160815
  Transmission Date: 20161109
  Serious: No
  Sender: FDA-Public Use
  Company Number: US-BEH-2016072208

PATIENT
  Sex: Female
  Weight: 142.86 kg

DRUGS (21)
  1. HIZENTRA [Suspect]
     Active Substance: HUMAN IMMUNOGLOBULIN G
     Dosage: UNK
     Route: 058
  2. ZOLOFT [Concomitant]
     Active Substance: SERTRALINE HYDROCHLORIDE
  3. POTASSIUM [Concomitant]
     Active Substance: POTASSIUM
  4. ACETAMINOPHEN. [Concomitant]
     Active Substance: ACETAMINOPHEN
  5. HIZENTRA [Suspect]
     Active Substance: HUMAN IMMUNOGLOBULIN G
     Indication: IMMUNODEFICIENCY COMMON VARIABLE
     Dosage: 21 G, QW
     Route: 058
     Dates: start: 20101028
  6. DIPHENHYDRAMINE. [Concomitant]
     Active Substance: DIPHENHYDRAMINE
  7. EPIPEN [Concomitant]
     Active Substance: EPINEPHRINE
  8. CARVEDILOL. [Concomitant]
     Active Substance: CARVEDILOL
  9. HYDROCODONE W/APAP                 /00607101/ [Concomitant]
  10. HIZENTRA [Suspect]
     Active Substance: HUMAN IMMUNOGLOBULIN G
     Dosage: UNK
     Route: 058
  11. SINGULAIR [Concomitant]
     Active Substance: MONTELUKAST SODIUM
  12. LASIX [Concomitant]
     Active Substance: FUROSEMIDE
  13. SYNTHROID [Concomitant]
     Active Substance: LEVOTHYROXINE SODIUM
  14. SINEMET [Concomitant]
     Active Substance: CARBIDOPA\LEVODOPA
  15. COPAXONE [Concomitant]
     Active Substance: GLATIRAMER ACETATE
  16. AMLODIPINE [Concomitant]
     Active Substance: AMLODIPINE BESYLATE
  17. LMX                                /00033401/ [Concomitant]
  18. QVAR [Concomitant]
     Active Substance: BECLOMETHASONE DIPROPIONATE
  19. XANAX [Concomitant]
     Active Substance: ALPRAZOLAM
  20. SPIRONOLACTONE. [Concomitant]
     Active Substance: SPIRONOLACTONE
  21. NEURONTIN [Concomitant]
     Active Substance: GABAPENTIN

REACTIONS (1)
  - Cystitis [Unknown]
